FAERS Safety Report 6898002-9 (Version None)
Quarter: 2010Q3

REPORT INFORMATION
  Report Type: 
  Country: None (occurrence: None)
  Receive Date: 20100802
  Receipt Date: 20070817
  Transmission Date: 20110219
  Serious: No
  Sender: FDA-Public Use
  Company Number: US-PFIZER INC-2007071395

PATIENT
  Age: 64 Year
  Sex: Female
  Weight: 62.6 kg

DRUGS (6)
  1. LYRICA [Suspect]
     Indication: NEURALGIA
     Dates: start: 20070401, end: 20070806
  2. FENTANYL [Suspect]
     Indication: NEURALGIA
     Dates: end: 20070806
  3. ATENOLOL [Concomitant]
     Indication: HYPERTENSION
  4. ATENOLOL [Concomitant]
  5. LOTREL [Concomitant]
     Indication: HYPERTENSION
     Dosage: 10/20
  6. NEXIUM [Concomitant]
     Indication: ABDOMINAL DISCOMFORT

REACTIONS (7)
  - ABDOMINAL DISCOMFORT [None]
  - ADVERSE DRUG REACTION [None]
  - CHEST PAIN [None]
  - DYSPEPSIA [None]
  - OESOPHAGEAL PAIN [None]
  - REGURGITATION [None]
  - SKIN ODOUR ABNORMAL [None]
